FAERS Safety Report 25651426 (Version 1)
Quarter: 2025Q3

REPORT INFORMATION
  Report Type: Spontaneous
  Country: US (occurrence: US)
  Receive Date: 20250806
  Receipt Date: 20250806
  Transmission Date: 20251021
  Serious: Yes (Other)
  Sender: AMGEN
  Company Number: US-AMGEN-USASP2025151569

PATIENT
  Age: 64 Year
  Sex: Male

DRUGS (3)
  1. PREDNISONE [Suspect]
     Active Substance: PREDNISONE
     Indication: Sarcoidosis
     Dosage: 20 MILLIGRAM, QD
     Route: 048
  2. METFORMIN [Concomitant]
     Active Substance: METFORMIN HYDROCHLORIDE
     Indication: Diabetes mellitus
     Dosage: 1000 MILLIGRAM, BID
  3. OXYGEN [Concomitant]
     Active Substance: OXYGEN
     Indication: Sarcoidosis
     Dosage: UNK, QHS

REACTIONS (4)
  - Atypical mycobacterial pneumonia [Unknown]
  - Lumbar spinal stenosis [Unknown]
  - Epidural lipomatosis [Unknown]
  - Peroneal nerve palsy [Unknown]
